FAERS Safety Report 14570461 (Version 1)
Quarter: 2018Q1

REPORT INFORMATION
  Report Type: Spontaneous
  Country: US (occurrence: US)
  Receive Date: 20180226
  Receipt Date: 20180226
  Transmission Date: 20180509
  Serious: Yes (Other)
  Sender: FDA-Public Use
  Company Number: US-009507513-1802USA009944

PATIENT
  Sex: Male

DRUGS (1)
  1. KEYTRUDA [Suspect]
     Active Substance: PEMBROLIZUMAB
     Indication: NEUROENDOCRINE CARCINOMA OF THE SKIN
     Dosage: UNK
     Route: 042
     Dates: start: 201703

REACTIONS (4)
  - Dyspnoea [Unknown]
  - Diabetes mellitus [Unknown]
  - Product use in unapproved indication [Unknown]
  - Nasal cavity mass [Unknown]

NARRATIVE: CASE EVENT DATE: 201703
